FAERS Safety Report 25360684 (Version 1)
Quarter: 2025Q2

REPORT INFORMATION
  Report Type: Spontaneous
  Country: US (occurrence: US)
  Receive Date: 20250527
  Receipt Date: 20250527
  Transmission Date: 20250717
  Serious: No
  Sender: ROCHE
  Company Number: US-ROCHE-10000286689

PATIENT
  Age: 55 Year
  Sex: Female

DRUGS (1)
  1. OCREVUS ZUNOVO [Suspect]
     Active Substance: HYALURONIDASE-OCSQ\OCRELIZUMAB
     Indication: Secondary progressive multiple sclerosis
     Dosage: DOSE: INJECTION 920 MG OCRELIZUMAB AND 23,000 UNITS HYALURONIDASE PER 23 ML (40 MG AND 1,000 UNITS P
     Route: 058
     Dates: start: 20241011

REACTIONS (4)
  - Fall [Not Recovered/Not Resolved]
  - Muscle rupture [Not Recovered/Not Resolved]
  - Fibula fracture [Not Recovered/Not Resolved]
  - Off label use [Unknown]

NARRATIVE: CASE EVENT DATE: 20250511
